FAERS Safety Report 18633617 (Version 1)
Quarter: 2020Q4

REPORT INFORMATION
  Report Type: Spontaneous
  Country: ZA (occurrence: ZA)
  Receive Date: 20201218
  Receipt Date: 20201218
  Transmission Date: 20210114
  Serious: Yes (Other)
  Sender: FDA-Public Use
  Company Number: ZA-PFIZER INC-2020499526

PATIENT
  Age: 44 Year
  Sex: Male
  Weight: 115 kg

DRUGS (1)
  1. SALAZOPYRIN [Suspect]
     Active Substance: SULFASALAZINE
     Dosage: 1.5 G, 2X/DAY
     Dates: start: 201508, end: 201809

REACTIONS (3)
  - Drug ineffective [Unknown]
  - Body mass index increased [Unknown]
  - Gout [Unknown]

NARRATIVE: CASE EVENT DATE: 20150817
